FAERS Safety Report 8235442-X (Version None)
Quarter: 2012Q1

REPORT INFORMATION
  Report Type: 
  Country: None (occurrence: None)
  Receive Date: 20120322
  Receipt Date: 20120126
  Transmission Date: 20120608
  Serious: Yes (Death, Hospitalization, Other)
  Sender: FDA-Public Use
  Company Number: AUR-APL-2009-00478

PATIENT
  Age: 68 Year
  Sex: Male
  Weight: 63.5 kg

DRUGS (6)
  1. ACETYLSALICYLIC ACID SRT [Suspect]
     Indication: CORONARY ARTERY DISEASE
     Dosage: 100 MG (100 MG, 1 IN 1 D), ORAL
     Route: 048
     Dates: start: 20010101, end: 20090806
  2. TAMSULOSINE (TAMSULOSINE) [Concomitant]
  3. PREDNISOLONE [Suspect]
     Indication: DIARRHOEA
     Dosage: 10MG (10 MG, 1 IN 1 D), ORAL
     Route: 048
     Dates: start: 20080601, end: 20090809
  4. PROANTHENOLS 100 [Suspect]
     Indication: IMMUNE ENHANCEMENT THERAPY
     Dosage: DOSE PER TABLET :OPC 100MG
     Route: 048
     Dates: start: 20090727, end: 20090805
  5. SIMVASTATIN [Suspect]
     Indication: DYSLIPIDAEMIA
     Dosage: 20 MG (20 MG, 1 IN 1 D), ORAL
     Route: 048
     Dates: start: 20090101, end: 20090701
  6. RAMIPRIL [Suspect]
     Indication: HYPERTENSION
     Dosage: 10 MG (10 MG, 1 IN 1 D), ORAL
     Route: 048
     Dates: start: 20020101, end: 20090809

REACTIONS (17)
  - DIALYSIS [None]
  - GENERAL PHYSICAL HEALTH DETERIORATION [None]
  - SOMNOLENCE [None]
  - ASTHENIA [None]
  - PROCEDURAL HAEMORRHAGE [None]
  - COAGULOPATHY [None]
  - HEPATIC HAEMORRHAGE [None]
  - ENCEPHALOPATHY [None]
  - HEPATIC FAILURE [None]
  - DECREASED APPETITE [None]
  - PAIN [None]
  - HEPATIC NECROSIS [None]
  - HEPATITIS VIRAL [None]
  - COMA [None]
  - HEPATITIS FULMINANT [None]
  - FATIGUE [None]
  - HAEMOGLOBIN DECREASED [None]
